FAERS Safety Report 16040577 (Version 1)
Quarter: 2019Q1

REPORT INFORMATION
  Report Type: Report from Study
  Country: US (occurrence: US)
  Receive Date: 20190306
  Receipt Date: 20190306
  Transmission Date: 20190418
  Serious: Yes (Other)
  Sender: FDA-Public Use
  Company Number: US-EMD SERONO-9075078

PATIENT
  Age: 56 Year
  Sex: Female

DRUGS (1)
  1. REBIF [Suspect]
     Active Substance: INTERFERON BETA-1A
     Indication: PRODUCT USED FOR UNKNOWN INDICATION
     Route: 058
     Dates: start: 20061012

REACTIONS (4)
  - Blood pressure fluctuation [Unknown]
  - Head discomfort [Unknown]
  - Loss of consciousness [Unknown]
  - Device damage [Unknown]

NARRATIVE: CASE EVENT DATE: 20190225
